FAERS Safety Report 7690138-8 (Version None)
Quarter: 2011Q3

REPORT INFORMATION
  Report Type: 
  Country: None (occurrence: None)
  Receive Date: 20110811
  Receipt Date: 20110729
  Transmission Date: 20111222
  Serious: Yes (Life-Threatening)
  Sender: FDA-Public Use
  Company Number: DSA_47346_2011

PATIENT
  Age: 76 Year
  Sex: Male

DRUGS (4)
  1. FLECAINIDE ACETATE [Suspect]
     Indication: VENTRICULAR ARRHYTHMIA
     Dosage: (DF ORAL)
     Route: 048
  2. NIFEDIPINE [Suspect]
     Indication: HYPERTENSION
     Dosage: (DF ORAL)
     Route: 048
  3. CIPRALAN [Suspect]
     Indication: VENTRICULAR ARRHYTHMIA
     Dosage: (DF ORAL)
     Route: 048
  4. HERBESSER R (HERBESSER R-DILTIAZEM HYDROCHLORIDE) 100 MG (NOT SPECIFIE [Suspect]
     Indication: HYPERTENSION
     Dosage: (100 MG, ORAL)
     Route: 048

REACTIONS (9)
  - RENAL IMPAIRMENT [None]
  - INCORRECT DOSE ADMINISTERED [None]
  - CARDIAC ARREST [None]
  - NO THERAPEUTIC RESPONSE [None]
  - BRADYCARDIA [None]
  - DRUG ADMINISTRATION ERROR [None]
  - DIALYSIS [None]
  - HYPOTENSION [None]
  - MEDICATION ERROR [None]
